FAERS Safety Report 5323837-3 (Version None)
Quarter: 2007Q2

REPORT INFORMATION
  Report Type: 
  Country: None (occurrence: None)
  Receive Date: 20070514
  Receipt Date: 20070511
  Transmission Date: 20071010
  Serious: Yes (Hospitalization)
  Sender: FDA-Public Use
  Company Number: B0470397A

PATIENT
  Age: 79 Year
  Sex: Female
  Weight: 75 kg

DRUGS (9)
  1. CLAMOXYL [Suspect]
     Indication: ERYSIPELAS
     Route: 048
     Dates: start: 20070407, end: 20070408
  2. TOPALGIC ( FRANCE ) [Concomitant]
  3. DOLIPRANE [Concomitant]
  4. PYOSTACINE [Concomitant]
     Indication: ERYSIPELAS
     Dates: start: 20070331, end: 20070415
  5. GENTAMICIN [Concomitant]
     Indication: ERYSIPELAS
     Dates: start: 20070402, end: 20070404
  6. PENICILLIN G [Concomitant]
     Indication: ERYSIPELAS
     Dates: start: 20070402, end: 20070404
  7. FONZYLANE [Concomitant]
     Dates: start: 20070403
  8. LOVENOX [Concomitant]
     Dates: start: 20070403
  9. DAFLON [Concomitant]
     Dates: start: 20070407

REACTIONS (2)
  - PRURIGO [None]
  - TOXIC SKIN ERUPTION [None]
